FAERS Safety Report 10243544 (Version 3)
Quarter: 2014Q3

REPORT INFORMATION
  Report Type: Spontaneous
  Country: FR (occurrence: FR)
  Receive Date: 20140618
  Receipt Date: 20140929
  Transmission Date: 20150326
  Serious: Yes (Death, Other)
  Sender: FDA-Public Use
  Company Number: FR-009507513-1406FRA007011

PATIENT
  Age: 61 Year
  Sex: Male
  Weight: 80 kg

DRUGS (6)
  1. RIBAVIRIN. [Suspect]
     Active Substance: RIBAVIRIN
     Dosage: UNK
     Route: 048
     Dates: start: 20110517, end: 20110823
  2. VICTRELIS [Suspect]
     Active Substance: BOCEPREVIR
     Dosage: UNK
     Route: 048
     Dates: start: 20110614, end: 20110823
  3. PEGASYS [Suspect]
     Active Substance: PEGINTERFERON ALFA-2A
     Indication: HEPATITIS C
     Dosage: 90 MICROGRAM, QW
     Dates: start: 20130502, end: 20140220
  4. COPEGUS [Suspect]
     Active Substance: RIBAVIRIN
     Indication: HEPATITIS C
     Dosage: 1000 MG, QD
     Dates: start: 20120202, end: 20140220
  5. TELAPREVIR [Suspect]
     Active Substance: TELAPREVIR
     Indication: HEPATITIS C
     Dosage: 750 MG, TID
     Dates: start: 20120202, end: 20120502
  6. MK-4031 [Suspect]
     Active Substance: PEGINTERFERON ALFA-2B
     Dosage: UNK
     Route: 058
     Dates: start: 20110517, end: 20110823

REACTIONS (6)
  - Cell death [Unknown]
  - Post procedural sepsis [Fatal]
  - Hepatocellular carcinoma [Unknown]
  - Liver transplant [Unknown]
  - Hepatocellular injury [Unknown]
  - Liver transplant [Unknown]

NARRATIVE: CASE EVENT DATE: 20120713
